FAERS Safety Report 9357396 (Version 1)
Quarter: 2013Q2

REPORT INFORMATION
  Report Type: Spontaneous
  Country: US (occurrence: None)
  Receive Date: 20130617
  Receipt Date: 20130617
  Transmission Date: 20140414
  Serious: Yes (Disabling, Other)
  Sender: FDA-Public Use
  Company Number: 1306-765

PATIENT
  Age: 78 Year
  Sex: Male

DRUGS (1)
  1. EYLEA [Suspect]
     Indication: AGE-RELATED MACULAR DEGENERATION
     Dosage: 2 MG, INTRAVITREAL
     Dates: end: 20130312

REACTIONS (6)
  - Headache [None]
  - Vision blurred [None]
  - Retinal detachment [None]
  - Eye inflammation [None]
  - Corneal disorder [None]
  - Vitreous opacities [None]
